FAERS Safety Report 5736605-5 (Version None)
Quarter: 2008Q2

REPORT INFORMATION
  Report Type: 
  Country: None (occurrence: None)
  Receive Date: 20080513
  Receipt Date: 20080506
  Transmission Date: 20081010
  Serious: Yes (Hospitalization)
  Sender: FDA-Public Use
  Company Number: FR-JNJFOC-20080500802

PATIENT
  Sex: Female

DRUGS (12)
  1. GALANTAMINE HYDROBROMIDE [Suspect]
     Route: 048
  2. GALANTAMINE HYDROBROMIDE [Suspect]
     Indication: DEMENTIA ALZHEIMER'S TYPE
     Route: 048
  3. HYDREA [Suspect]
     Indication: EOSINOPHILIA
     Route: 048
  4. HYPERIUM [Concomitant]
  5. ISOPTIN [Concomitant]
  6. OSTRAM [Concomitant]
  7. ASPIRIN [Concomitant]
  8. LASILIX [Concomitant]
  9. OMEPRAZOLE [Concomitant]
  10. CORTANCYL [Concomitant]
  11. TRIATEC [Concomitant]
  12. ELISOR [Concomitant]

REACTIONS (1)
  - BRONCHOSPASM [None]
